FAERS Safety Report 7409478-2 (Version None)
Quarter: 2011Q2

REPORT INFORMATION
  Report Type: 
  Country: None (occurrence: None)
  Receive Date: 20110407
  Receipt Date: 20110407
  Transmission Date: 20111010
  Serious: Yes (Hospitalization)
  Sender: FDA-Public Use
  Company Number: None

PATIENT
  Age: 63 Year
  Sex: Male
  Weight: 90 kg

DRUGS (1)
  1. ATENOLOL [Suspect]
     Indication: HYPERTENSION
     Dosage: 350 MG ONCE PO
     Route: 048
     Dates: start: 20040210

REACTIONS (3)
  - FEELING ABNORMAL [None]
  - CONFUSIONAL STATE [None]
  - SUICIDE ATTEMPT [None]
